FAERS Safety Report 23221121 (Version 2)
Quarter: 2023Q4

REPORT INFORMATION
  Report Type: Report from Study
  Country: US (occurrence: US)
  Receive Date: 20231123
  Receipt Date: 20231206
  Transmission Date: 20240110
  Serious: No
  Sender: FDA-Public Use
  Company Number: US-002147023-NVSC2023US250097

PATIENT
  Sex: Female

DRUGS (2)
  1. ENTRESTO [Suspect]
     Active Substance: SACUBITRIL\VALSARTAN
     Indication: Cardiac failure
     Dosage: 49/51MG, BID
     Route: 048
     Dates: start: 202307
  2. ENTRESTO [Suspect]
     Active Substance: SACUBITRIL\VALSARTAN
     Dosage: 24/26MG, BID
     Route: 048

REACTIONS (5)
  - Thinking abnormal [Unknown]
  - Therapeutic response changed [Unknown]
  - Palpitations [Unknown]
  - Fatigue [Recovered/Resolved]
  - Dyspnoea [Unknown]
